FAERS Safety Report 9400788 (Version 2)
Quarter: 2013Q3

REPORT INFORMATION
  Report Type: Spontaneous
  Country: US (occurrence: US)
  Receive Date: 20130715
  Receipt Date: 20130805
  Transmission Date: 20140515
  Serious: Yes (Hospitalization, Other)
  Sender: FDA-Public Use
  Company Number: US-PFIZER INC-2013202940

PATIENT
  Age: 98 Year
  Sex: Female

DRUGS (2)
  1. ZYVOX [Suspect]
     Indication: INFECTION PROPHYLAXIS
     Dosage: UNK, EVERY TWO DAYS
     Route: 048
  2. LYRICA [Concomitant]
     Dosage: UNK

REACTIONS (3)
  - Fall [Unknown]
  - Cardiac failure congestive [Unknown]
  - Off label use [Unknown]
